FAERS Safety Report 10098838 (Version 1)
Quarter: 2014Q2

REPORT INFORMATION
  Report Type: Spontaneous
  Country: US (occurrence: US)
  Receive Date: 20140423
  Receipt Date: 20140423
  Transmission Date: 20141212
  Serious: Yes (Other)
  Sender: FDA-Public Use
  Company Number: US-BRISTOL-MYERS SQUIBB COMPANY-20627675

PATIENT
  Sex: 0

DRUGS (1)
  1. ELIQUIS [Suspect]

REACTIONS (1)
  - Heart valve replacement [Unknown]
